FAERS Safety Report 7142152-9 (Version None)
Quarter: 2010Q4

REPORT INFORMATION
  Report Type: 
  Country: None (occurrence: None)
  Receive Date: 20101207
  Receipt Date: 20101124
  Transmission Date: 20110411
  Serious: Yes (Other)
  Sender: FDA-Public Use
  Company Number: FR-BRISTOL-MYERS SQUIBB COMPANY-15415441

PATIENT

DRUGS (1)
  1. ERBITUX [Suspect]
     Route: 042

REACTIONS (2)
  - AMPUTATION [None]
  - PERIPHERAL ISCHAEMIA [None]
